FAERS Safety Report 10726125 (Version 1)
Quarter: 2015Q1

REPORT INFORMATION
  Report Type: Spontaneous
  Country: IN (occurrence: None)
  Receive Date: 20150116
  Receipt Date: 20150116
  Transmission Date: 20150721
  Serious: Yes (Other)
  Sender: FDA-Public Use
  Company Number: 2015JUB00004

PATIENT
  Age: 25 Year
  Sex: Male

DRUGS (2)
  1. AMISULPRIDE (AMISULPRIDE ) UNKNOWN [Suspect]
     Active Substance: AMISULPRIDE
     Route: 048
  2. RISPERIDONE (RISPERIDONE)UKNOWN [Suspect]
     Active Substance: RISPERIDONE
     Route: 048

REACTIONS (3)
  - Trismus [None]
  - Joint dislocation [None]
  - Oromandibular dystonia [None]
